FAERS Safety Report 9970537 (Version 1)
Quarter: 2014Q1

REPORT INFORMATION
  Report Type: Spontaneous
  Country: US (occurrence: None)
  Receive Date: 20140305
  Receipt Date: 20140305
  Transmission Date: 20141002
  Serious: Yes (Life-Threatening)
  Sender: FDA-Public Use
  Company Number: None

PATIENT
  Age: 54 Year
  Sex: Female
  Weight: 160 kg

DRUGS (1)
  1. ROGAINE FOR WOMEN [Suspect]
     Indication: ALOPECIA
     Dosage: TWICE DAILY APPLIED TO A SURFACE, USUALLY THE SKIN
     Route: 061
     Dates: start: 20140105, end: 20140221

REACTIONS (1)
  - Thyroid mass [None]
